FAERS Safety Report 6671006-7 (Version None)
Quarter: 2010Q2

REPORT INFORMATION
  Report Type: 
  Country: None (occurrence: None)
  Receive Date: 20100407
  Receipt Date: 20100326
  Transmission Date: 20101027
  Serious: Yes (Other)
  Sender: FDA-Public Use
  Company Number: PHHY2010DE19521

PATIENT
  Age: 63 Year
  Sex: Male

DRUGS (2)
  1. ACLASTA [Suspect]
     Indication: OSTEOPOROSIS
     Dosage: UNK
     Route: 042
     Dates: start: 20090201, end: 20090201
  2. ACLASTA [Suspect]
     Dosage: UNK
     Route: 042
     Dates: start: 20100301, end: 20100301

REACTIONS (2)
  - DYSPNOEA [None]
  - GASTROINTESTINAL DISORDER [None]
